FAERS Safety Report 5215280-2 (Version None)
Quarter: 2006Q4

REPORT INFORMATION
  Report Type: 
  Country: None (occurrence: None)
  Receive Date: 20061122
  Receipt Date: 20060210
  Transmission Date: 20070319
  Serious: Yes (Other)
  Sender: FDA-Public Use
  Company Number: HQWYE818915FEB06

PATIENT
  Age: 53 Year
  Sex: Female
  Weight: 74.91 kg

DRUGS (5)
  1. PREMARIN [Suspect]
     Indication: VULVOVAGINAL DRYNESS
     Dosage: 1 GRAM, 2-3 TIMES A WEEK, VAGINAL
     Route: 067
     Dates: start: 20051001, end: 20060201
  2. FLEXERIL [Concomitant]
  3. CALCIUM (CALCIUM) [Concomitant]
  4. NAPROXEN [Concomitant]
  5. TRAZODONE HCL [Concomitant]

REACTIONS (2)
  - BLISTER [None]
  - GENITAL PRURITUS FEMALE [None]
